FAERS Safety Report 9508060 (Version 1)
Quarter: 2013Q3

REPORT INFORMATION
  Report Type: Spontaneous
  Country: US (occurrence: US)
  Receive Date: 20130909
  Receipt Date: 20130909
  Transmission Date: 20140515
  Serious: Yes (Hospitalization, Other)
  Sender: FDA-Public Use
  Company Number: PHHY2013US094748

PATIENT
  Sex: Female

DRUGS (10)
  1. CLOZAPINE [Suspect]
     Indication: SCHIZOPHRENIA
     Dosage: 200 MG, BEFORE MEALS AND AT BEDTIME
     Route: 048
  2. CIPROFLOXACIN [Interacting]
     Indication: URINARY TRACT INFECTION
  3. AZITHROMYCIN [Concomitant]
     Dosage: 250 MG, TWICE DAILY
     Route: 048
  4. ESCITALOPRAM [Concomitant]
  5. LEVOTHYROXINE [Concomitant]
     Dosage: UNK UKN, UNK
  6. BUSPIRONE [Concomitant]
     Dosage: UNK UKN, UNK
  7. DONEPEZIL [Concomitant]
     Dosage: UNK UKN, UNK
  8. OMEPRAZOLE [Concomitant]
     Dosage: UNK UKN, UNK
  9. DILTIAZEM [Concomitant]
     Dosage: UNK UKN, UNK
  10. ACETAMINOPHEN [Concomitant]
     Dosage: UNK UKN, UNK

REACTIONS (11)
  - Neuroleptic malignant syndrome [Recovered/Resolved]
  - Hyperhidrosis [Unknown]
  - Muscle rigidity [Unknown]
  - Cogwheel rigidity [Unknown]
  - Dysphagia [Unknown]
  - Decreased appetite [Unknown]
  - Weight decreased [Unknown]
  - Mutism [Unknown]
  - Staring [Unknown]
  - Antipsychotic drug level increased [Unknown]
  - Drug interaction [Unknown]
